FAERS Safety Report 23701666 (Version 2)
Quarter: 2024Q2

REPORT INFORMATION
  Report Type: Spontaneous
  Country: CA (occurrence: CA)
  Receive Date: 20240403
  Receipt Date: 20240516
  Transmission Date: 20240716
  Serious: Yes (Hospitalization, Other)
  Sender: FDA-Public Use
  Company Number: CA-PFIZER INC-PV202400042251

PATIENT
  Age: 71 Year
  Sex: Male

DRUGS (8)
  1. ADRIAMYCIN [Suspect]
     Active Substance: DOXORUBICIN HYDROCHLORIDE
     Indication: Central nervous system lymphoma
     Dosage: UNK UNK, CYCLIC
     Dates: start: 20161118
  2. ADRIAMYCIN [Suspect]
     Active Substance: DOXORUBICIN HYDROCHLORIDE
     Dosage: DOSE REDUCTION
  3. BLEOMYCIN SULFATE [Suspect]
     Active Substance: BLEOMYCIN SULFATE
     Indication: Central nervous system lymphoma
     Dosage: UNK, CYCLIC
     Dates: start: 20161118
  4. BLEOMYCIN SULFATE [Suspect]
     Active Substance: BLEOMYCIN SULFATE
     Dosage: DOSE REDUCTION
  5. VINBLASTINE [Suspect]
     Active Substance: VINBLASTINE
     Indication: Central nervous system lymphoma
     Dosage: UNK, CYCLIC
     Dates: start: 20161118
  6. VINBLASTINE [Suspect]
     Active Substance: VINBLASTINE
     Dosage: DOSE REDUCTION
  7. DACARBAZINE [Suspect]
     Active Substance: DACARBAZINE
     Indication: Central nervous system lymphoma
     Dosage: UNK, CYCLIC
     Dates: start: 20161118
  8. DACARBAZINE [Suspect]
     Active Substance: DACARBAZINE
     Dosage: DOSE REDUCTION

REACTIONS (4)
  - Febrile neutropenia [Unknown]
  - Malaise [Unknown]
  - Fatigue [Unknown]
  - Off label use [Unknown]

NARRATIVE: CASE EVENT DATE: 20161118
